FAERS Safety Report 8909597 (Version 3)
Quarter: 2013Q1

REPORT INFORMATION
  Report Type: Spontaneous
  Country: US (occurrence: US)
  Receive Date: 20121114
  Receipt Date: 20130218
  Transmission Date: 20140127
  Serious: No
  Sender: FDA-Public Use
  Company Number: US-009507513-1211USA002520

PATIENT
  Age: 33 Year
  Sex: Female

DRUGS (1)
  1. NEXPLANON [Suspect]
     Dosage: UNK
     Dates: start: 20121102, end: 20130204

REACTIONS (4)
  - Menorrhagia [Recovered/Resolved]
  - Headache [Recovered/Resolved]
  - Medical device complication [Recovered/Resolved]
  - Product quality issue [Recovered/Resolved]
